FAERS Safety Report 26063255 (Version 1)
Quarter: 2025Q4

REPORT INFORMATION
  Report Type: Spontaneous
  Country: EU (occurrence: EU)
  Receive Date: 20251119
  Receipt Date: 20251119
  Transmission Date: 20260117
  Serious: Yes (Hospitalization)
  Sender: BAUSCH AND LOMB
  Company Number: None

PATIENT
  Age: 69 Year
  Sex: Female

DRUGS (8)
  1. BEXAROTENE [Suspect]
     Active Substance: BEXAROTENE
     Indication: Cutaneous T-cell lymphoma
     Route: 048
     Dates: start: 20251020, end: 20251028
  2. BEXAROTENE [Suspect]
     Active Substance: BEXAROTENE
     Dosage: DOSE RE-INTRODUCED
     Route: 065
  3. FENOFIBRATE [Suspect]
     Active Substance: FENOFIBRATE
     Indication: Cutaneous T-cell lymphoma
     Route: 048
     Dates: start: 20251020, end: 20251028
  4. FENOFIBRATE [Suspect]
     Active Substance: FENOFIBRATE
     Dosage: DOSE RE-INTRODUCED
     Route: 065
  5. LEVOTHYROXINE SODIUM [Suspect]
     Active Substance: LEVOTHYROXINE SODIUM
     Indication: Cutaneous T-cell lymphoma
     Route: 048
     Dates: start: 20251020, end: 20251028
  6. LEVOTHYROXINE SODIUM [Suspect]
     Active Substance: LEVOTHYROXINE SODIUM
     Dosage: DOSE RE-INTRODUCED
     Route: 065
  7. MELATONIN [Suspect]
     Active Substance: MELATONIN
     Indication: Cutaneous T-cell lymphoma
     Route: 048
     Dates: start: 202509, end: 20251030
  8. MELATONIN [Suspect]
     Active Substance: MELATONIN
     Dosage: DOSE RE-INTRODUCED
     Route: 065

REACTIONS (1)
  - Drug reaction with eosinophilia and systemic symptoms [Recovered/Resolved]

NARRATIVE: CASE EVENT DATE: 20251027
